FAERS Safety Report 18742740 (Version 1)
Quarter: 2021Q1

REPORT INFORMATION
  Report Type: Report from Study
  Country: AU (occurrence: AU)
  Receive Date: 20210115
  Receipt Date: 20210115
  Transmission Date: 20210419
  Serious: Yes (Other)
  Sender: FDA-Public Use
  Company Number: AU-BEH-2020124837

PATIENT
  Age: 58 Year
  Sex: Female
  Weight: 116 kg

DRUGS (48)
  1. ASPRIN [Concomitant]
     Active Substance: ASPIRIN
  2. CALCIUM CARBONATE. [Concomitant]
     Active Substance: CALCIUM CARBONATE
  3. MAGNESIUM ASPARTATE [Concomitant]
     Active Substance: MAGNESIUM ASPARTATE
  4. MORPHINE [Concomitant]
     Active Substance: MORPHINE
  5. MYCOPHENOLATE MOFETIL. [Concomitant]
     Active Substance: MYCOPHENOLATE MOFETIL
  6. SODIUM CITRATE;SORBITOL [Concomitant]
  7. MICRODOX [Concomitant]
  8. ASCORBIC ACID. [Concomitant]
     Active Substance: ASCORBIC ACID
  9. CLONAZEPAM. [Concomitant]
     Active Substance: CLONAZEPAM
  10. DEXAMFETAMINE [Concomitant]
     Active Substance: DEXTROAMPHETAMINE
  11. LORATADINE. [Concomitant]
     Active Substance: LORATADINE
  12. MELOXICAM. [Concomitant]
     Active Substance: MELOXICAM
  13. METHENAMINE [Concomitant]
     Active Substance: METHENAMINE
  14. MIRABEGRON [Concomitant]
     Active Substance: MIRABEGRON
  15. NIZATIDINE. [Concomitant]
     Active Substance: NIZATIDINE
  16. COLECALCIFEROL [Concomitant]
     Active Substance: CHOLECALCIFEROL
  17. HIZENTRA [Suspect]
     Active Substance: HUMAN IMMUNOGLOBULIN G
     Indication: PRIMARY IMMUNODEFICIENCY SYNDROME
     Dosage: 8 GRAM, QW
     Route: 058
     Dates: start: 20201109, end: 20201109
  18. COLCHICIN [Concomitant]
     Active Substance: COLCHICINE
  19. ESTRIOL [ESTRIOL SUCCINATE] [Concomitant]
     Route: 061
  20. FLUDROCORTISONE [Concomitant]
     Active Substance: FLUDROCORTISONE
  21. PROBIOTICS NOS [Concomitant]
     Active Substance: PROBIOTICS NOS
  22. ESTRADIOL [ESTRADIOL VALERATE] [Concomitant]
  23. AMLODIPINE [Concomitant]
     Active Substance: AMLODIPINE BESYLATE
  24. BUDESONIDE;FORMOTEROL [Concomitant]
     Active Substance: BUDESONIDE\FORMOTEROL
  25. DENOSUMAB [Concomitant]
     Active Substance: DENOSUMAB
  26. DOCUSATE SODIUM AND SENNA [Concomitant]
     Active Substance: DOCUSATE SODIUM\SENNOSIDES
  27. ESOMEPRAZOLE. [Concomitant]
     Active Substance: ESOMEPRAZOLE MAGNESIUM
  28. PREDNISOLONE. [Concomitant]
     Active Substance: PREDNISOLONE
  29. SOLIFENACIN [Concomitant]
     Active Substance: SOLIFENACIN
  30. HUMAN IMMUNOGLOBULIN (INN) [Suspect]
     Active Substance: HUMAN IMMUNOGLOBULIN G
     Indication: PRODUCT USED FOR UNKNOWN INDICATION
     Route: 042
  31. FUROSEMIDE. [Concomitant]
     Active Substance: FUROSEMIDE
  32. OCULAR LUBRICANT [PARAFFIN, LIQUID;PETROLATUM] [Concomitant]
  33. D?MANNOSE [Concomitant]
  34. MACROGOL 3350 [Concomitant]
     Active Substance: POLYETHYLENE GLYCOL 3350
  35. METHOXYFLURANE. [Concomitant]
     Active Substance: METHOXYFLURANE
  36. TRIMETHOPRIM. [Concomitant]
     Active Substance: TRIMETHOPRIM
  37. PHENERGAN [Concomitant]
     Active Substance: PROMETHAZINE HYDROCHLORIDE
     Indication: PREMEDICATION
  38. DOMPERIDONE [Concomitant]
     Active Substance: DOMPERIDONE
  39. HIZENTRA [Suspect]
     Active Substance: HUMAN IMMUNOGLOBULIN G
     Dosage: UNK
     Route: 058
     Dates: start: 20210104
  40. CICLOSPORIN [Concomitant]
     Active Substance: CYCLOSPORINE
  41. DULOXETINE. [Concomitant]
     Active Substance: DULOXETINE
  42. GABAPENTIN. [Concomitant]
     Active Substance: GABAPENTIN
  43. HYDROXOCOBALAMIN [Concomitant]
     Active Substance: HYDROXOCOBALAMIN
  44. IPRATROPIUM [Concomitant]
     Active Substance: IPRATROPIUM
  45. PARACETAMOL [Concomitant]
     Active Substance: ACETAMINOPHEN
  46. SALBUTAMOL [Concomitant]
     Active Substance: ALBUTEROL
  47. SODIUM CHLORIDE. [Concomitant]
     Active Substance: SODIUM CHLORIDE
  48. PHENERGAN [Concomitant]
     Active Substance: PROMETHAZINE HYDROCHLORIDE
     Indication: PREMEDICATION

REACTIONS (8)
  - Headache [Recovering/Resolving]
  - Vomiting [Recovered/Resolved]
  - Nausea [Recovering/Resolving]
  - Headache [Recovered/Resolved]
  - Hyperhidrosis [Recovering/Resolving]
  - Nausea [Recovered/Resolved]
  - Arthralgia [Recovering/Resolving]
  - Meningitis aseptic [Recovered/Resolved]

NARRATIVE: CASE EVENT DATE: 2020
